FAERS Safety Report 7673579-4 (Version None)
Quarter: 2011Q3

REPORT INFORMATION
  Report Type: 
  Country: None (occurrence: None)
  Receive Date: 20110810
  Receipt Date: 20110809
  Transmission Date: 20111222
  Serious: Yes (Hospitalization)
  Sender: FDA-Public Use
  Company Number: IT-SANOFI-AVENTIS-2011SA048851

PATIENT
  Age: 59 Year
  Sex: Male

DRUGS (4)
  1. IRBESARTAN [Concomitant]
     Route: 048
  2. ATORVASTATIN [Concomitant]
     Route: 048
  3. AMARYL [Suspect]
     Route: 048
     Dates: start: 20101216, end: 20110316
  4. METFORMIN HCL [Suspect]
     Route: 048
     Dates: start: 20101216, end: 20110316

REACTIONS (3)
  - LACTIC ACIDOSIS [None]
  - HYPOGLYCAEMIA [None]
  - RENAL FAILURE ACUTE [None]
